FAERS Safety Report 8481209-7 (Version None)
Quarter: 2012Q3

REPORT INFORMATION
  Report Type: 
  Country: None (occurrence: None)
  Receive Date: 20120702
  Receipt Date: 20120625
  Transmission Date: 20120928
  Serious: Yes (Life-Threatening)
  Sender: FDA-Public Use
  Company Number: AT-CELGENEUS-009-21880-12063458

PATIENT
  Age: 81 Year
  Sex: Male

DRUGS (3)
  1. REVLIMID [Suspect]
     Indication: NON-HODGKIN'S LYMPHOMA
     Dosage: 10 MILLIGRAM
     Route: 048
     Dates: start: 20100601, end: 20100801
  2. REVLIMID [Suspect]
     Route: 048
     Dates: start: 20100901, end: 20111001
  3. REVLIMID [Suspect]
     Indication: MANTLE CELL LYMPHOMA
     Route: 048
     Dates: start: 20100506, end: 20100501

REACTIONS (1)
  - ACUTE MYELOID LEUKAEMIA [None]
